FAERS Safety Report 4275187-4 (Version None)
Quarter: 2004Q1

REPORT INFORMATION
  Report Type: 
  Country: None (occurrence: None)
  Receive Date: 20040116
  Receipt Date: 20040113
  Transmission Date: 20041129
  Serious: Yes (Hospitalization)
  Sender: FDA-Public Use
  Company Number: 2003181741US

PATIENT
  Age: 77 Year
  Sex: Male
  Weight: 79.8 kg

DRUGS (3)
  1. DETROL LA [Suspect]
     Indication: POLLAKIURIA
     Dosage: 1 DF, QD, ORAL
     Route: 048
     Dates: start: 20031008, end: 20031012
  2. MONOPRIL [Concomitant]
  3. LIPITOR [Concomitant]

REACTIONS (1)
  - PANCREATOLITHIASIS [None]
